FAERS Safety Report 23800058 (Version 3)
Quarter: 2024Q3

REPORT INFORMATION
  Report Type: Spontaneous
  Country: US (occurrence: US)
  Receive Date: 20240430
  Receipt Date: 20240822
  Transmission Date: 20241017
  Serious: Yes (Hospitalization)
  Sender: BIOVITRUM
  Company Number: US-BIOVITRUM-2024-US-004392

PATIENT
  Age: 52 Year
  Sex: Female

DRUGS (6)
  1. KINERET [Suspect]
     Active Substance: ANAKINRA
     Indication: Encephalitis autoimmune
     Dosage: ONCE DAILY (QD)
     Route: 058
  2. KINERET [Suspect]
     Active Substance: ANAKINRA
     Dosage: TWICE DAILY
     Route: 058
  3. KINERET [Suspect]
     Active Substance: ANAKINRA
     Dosage: AS ORDERED
     Route: 058
  4. KINERET [Suspect]
     Active Substance: ANAKINRA
     Dosage: 28 MG, AS ORDERED
     Route: 058
  5. KINERET [Suspect]
     Active Substance: ANAKINRA
     Dosage: UNKNOWN DOSE, TWICE PER DAY
     Route: 058
     Dates: start: 202403
  6. INSULIN NOS [Concomitant]
     Active Substance: INSULIN NOS
     Indication: Product used for unknown indication

REACTIONS (10)
  - Condition aggravated [Unknown]
  - Product dose omission in error [Unknown]
  - Insurance issue [Unknown]
  - Off label use [Not Recovered/Not Resolved]
  - Needle track marks [Unknown]
  - Malaise [Unknown]
  - Injection site nodule [Unknown]
  - Product dose omission issue [Unknown]
  - Injection site urticaria [Unknown]
  - Injection site erythema [Unknown]

NARRATIVE: CASE EVENT DATE: 20240301
